FAERS Safety Report 5331507-0 (Version None)
Quarter: 2007Q2

REPORT INFORMATION
  Report Type: 
  Country: None (occurrence: None)
  Receive Date: 20070522
  Receipt Date: 20070510
  Transmission Date: 20071010
  Serious: Yes (Hospitalization, Other)
  Sender: FDA-Public Use
  Company Number: US-PFIZER INC-2006062874

PATIENT
  Sex: Female
  Weight: 112 kg

DRUGS (9)
  1. SUTENT [Suspect]
     Indication: RENAL CELL CARCINOMA STAGE UNSPECIFIED
     Route: 048
     Dates: start: 20051027, end: 20060509
  2. SUTENT [Suspect]
     Route: 048
  3. SUTENT [Suspect]
     Route: 048
  4. PAROXETINE [Concomitant]
     Indication: DEPRESSION
     Route: 048
  5. ACETAMINOPHEN [Concomitant]
     Indication: ARTHRITIS
     Route: 048
  6. ACETYLSALICYLIC ACID SRT [Concomitant]
     Indication: PAIN
     Route: 048
  7. ACETYLSALICYLIC ACID SRT [Concomitant]
  8. MAALOX FAST BLOCKER [Concomitant]
     Indication: GASTROOESOPHAGEAL REFLUX DISEASE
     Route: 048
  9. OMEPRAZOLE [Concomitant]
     Indication: GASTROOESOPHAGEAL REFLUX DISEASE
     Route: 048

REACTIONS (34)
  - ABDOMINAL PAIN UPPER [None]
  - ANAEMIA [None]
  - BILIARY TRACT DISORDER [None]
  - CYTOMEGALOVIRUS INFECTION [None]
  - DECREASED APPETITE [None]
  - DIARRHOEA [None]
  - DISEASE PROGRESSION [None]
  - DUODENITIS [None]
  - DYSGEUSIA [None]
  - EATING DISORDER [None]
  - FATIGUE [None]
  - FUNGAL INFECTION [None]
  - GASTRIC ULCER [None]
  - GASTRITIS [None]
  - GASTROINTESTINAL HAEMORRHAGE [None]
  - GASTROOESOPHAGEAL REFLUX DISEASE [None]
  - HAEMATOCRIT [None]
  - HAEMOGLOBIN [None]
  - HAEMOGLOBIN DECREASED [None]
  - HYPOKALAEMIA [None]
  - HYPONATRAEMIA [None]
  - HYPOTHYROIDISM [None]
  - HYPOVOLAEMIA [None]
  - MENTAL STATUS CHANGES [None]
  - METASTASES TO CENTRAL NERVOUS SYSTEM [None]
  - NAUSEA [None]
  - OESOPHAGITIS [None]
  - ORAL INTAKE REDUCED [None]
  - PAIN [None]
  - PEPTIC ULCER [None]
  - PLEURAL EFFUSION [None]
  - PNEUMONIA [None]
  - PROTHROMBIN TIME PROLONGED [None]
  - URINARY TRACT INFECTION [None]
